FAERS Safety Report 17134723 (Version 1)
Quarter: 2019Q4

REPORT INFORMATION
  Report Type: Spontaneous
  Country: SE (occurrence: SE)
  Receive Date: 20191210
  Receipt Date: 20191210
  Transmission Date: 20200122
  Serious: Yes (Hospitalization)
  Sender: FDA-Public Use
  Company Number: SE-ASTRAZENECA-2019SF73369

PATIENT
  Age: 26 Year

DRUGS (6)
  1. ESCITALOPRAM [Suspect]
     Active Substance: ESCITALOPRAM OXALATE
     Dosage: UNKNOWN DOSE
     Route: 048
     Dates: start: 20181115, end: 20181115
  2. SEROQUEL [Suspect]
     Active Substance: QUETIAPINE FUMARATE
     Dosage: UNKNOWN DOSE
     Route: 048
     Dates: start: 20181115, end: 20181115
  3. VOXRA [Suspect]
     Active Substance: BUPROPION HYDROCHLORIDE
     Dosage: UNKNOWN DOSE
     Route: 048
     Dates: start: 20181115, end: 20181115
  4. LYRICA [Suspect]
     Active Substance: PREGABALIN
     Dosage: UNKNOWN DOSE
     Route: 048
     Dates: start: 20181115, end: 20181115
  5. PROPAVAN [Suspect]
     Active Substance: PROPIOMAZINE
     Dosage: UNKNOWN DOSE
     Route: 048
     Dates: start: 20181115, end: 20181115
  6. LERGIGAN [PROMETHAZINE HYDROCHLORIDE] [Suspect]
     Active Substance: PROMETHAZINE HYDROCHLORIDE
     Dosage: UNKNOWN DOSE
     Route: 048
     Dates: start: 20181115, end: 20181115

REACTIONS (6)
  - Muscle twitching [Unknown]
  - Urinary retention [Unknown]
  - Intentional overdose [Unknown]
  - Myoclonus [Unknown]
  - Mydriasis [Unknown]
  - Intentional self-injury [Unknown]

NARRATIVE: CASE EVENT DATE: 20181115
